FAERS Safety Report 15326416 (Version 2)
Quarter: 2018Q3

REPORT INFORMATION
  Report Type: Spontaneous
  Country: CN (occurrence: CN)
  Receive Date: 20180828
  Receipt Date: 20180905
  Transmission Date: 20181010
  Serious: Yes (Other)
  Sender: FDA-Public Use
  Company Number: CN-BAYER-2018-160593

PATIENT
  Age: 66 Year
  Sex: Male

DRUGS (1)
  1. BAYASPIRIN 100 MG [Suspect]
     Active Substance: ASPIRIN
     Dosage: UNK
     Route: 048
     Dates: end: 2016

REACTIONS (5)
  - Gastric haemorrhage [None]
  - Dermatitis [None]
  - Gastric ulcer [None]
  - Poor peripheral circulation [None]
  - Product coating issue [None]

NARRATIVE: CASE EVENT DATE: 2016
